FAERS Safety Report 19430292 (Version 1)
Quarter: 2021Q2

REPORT INFORMATION
  Report Type: Spontaneous
  Country: US (occurrence: US)
  Receive Date: 20210618
  Receipt Date: 20210618
  Transmission Date: 20210717
  Serious: No
  Sender: FDA-Public Use
  Company Number: US-ROCHE-2707559

PATIENT
  Age: 73 Year
  Sex: Female
  Weight: 55.84 kg

DRUGS (3)
  1. PREDNISONE. [Concomitant]
     Active Substance: PREDNISONE
     Indication: GIANT CELL ARTERITIS
  2. ACTEMRA [Suspect]
     Active Substance: TOCILIZUMAB
     Indication: GIANT CELL ARTERITIS
     Route: 058
     Dates: start: 201911
  3. NEOCELL SUPER COLLAGEN TYPE 1 + 3 [Concomitant]
     Indication: ALOPECIA
     Dosage: MIXED IN 12OZ OF WATER ;ONGOING: YES
     Route: 048

REACTIONS (2)
  - No adverse event [Unknown]
  - Poor quality product administered [Unknown]

NARRATIVE: CASE EVENT DATE: 20201030
